FAERS Safety Report 22264522 (Version 1)
Quarter: 2023Q2

REPORT INFORMATION
  Report Type: Spontaneous
  Country: US (occurrence: US)
  Receive Date: 20230428
  Receipt Date: 20230428
  Transmission Date: 20230721
  Serious: Yes (Hospitalization)
  Sender: FDA-Public Use
  Company Number: US-ELI_LILLY_AND_COMPANY-US202304011522

PATIENT
  Sex: Female
  Weight: 59.1 kg

DRUGS (6)
  1. ADCIRCA [Suspect]
     Active Substance: TADALAFIL
     Indication: Product used for unknown indication
     Dosage: UNK UNK, UNKNOWN
     Route: 065
  2. SELEXIPAG [Suspect]
     Active Substance: SELEXIPAG
     Indication: Pulmonary arterial hypertension
     Dosage: 2000 UG, OTHER (ONE IN 0.5DAY)
     Route: 048
  3. SELEXIPAG [Suspect]
     Active Substance: SELEXIPAG
     Dosage: 2400 UG, OTHER (ONE IN 0.5DAY)
     Route: 048
  4. SELEXIPAG [Suspect]
     Active Substance: SELEXIPAG
     Dosage: 1000 UG, OTHER (ONE IN 0.5DAY)
     Route: 048
  5. SELEXIPAG [Suspect]
     Active Substance: SELEXIPAG
     Dosage: 1200 UG, OTHER (ONE IN 0.5DAY)
     Route: 048
  6. SELEXIPAG [Suspect]
     Active Substance: SELEXIPAG
     Dosage: 1400 UG, OTHER (ONE IN 0.5DAY)
     Route: 048

REACTIONS (15)
  - Oropharyngeal pain [Unknown]
  - Tremor [Unknown]
  - Pain in jaw [Unknown]
  - Pyrexia [Recovering/Resolving]
  - Anxiety [Unknown]
  - Cough [Unknown]
  - Insomnia [Unknown]
  - Nasopharyngitis [Recovering/Resolving]
  - Arthralgia [Unknown]
  - Dizziness [Unknown]
  - Headache [Unknown]
  - Flushing [Recovered/Resolved]
  - Nausea [Unknown]
  - Pain in extremity [Unknown]
  - Nasal congestion [Unknown]

NARRATIVE: CASE EVENT DATE: 20220101
